FAERS Safety Report 8036579-0 (Version None)
Quarter: 2012Q1

REPORT INFORMATION
  Report Type: 
  Country: None (occurrence: None)
  Receive Date: 20120109
  Receipt Date: 20111222
  Transmission Date: 20120608
  Serious: Yes (Hospitalization)
  Sender: FDA-Public Use
  Company Number: DSU-2011-09656

PATIENT
  Age: 72 Year
  Sex: Female

DRUGS (12)
  1. RIVOTRIL (CLONAZEPAM) (ORAL LIQUID) (CLONAZEPAM) [Concomitant]
  2. JANUMET (METFORMIN HYDROCHLORIDE, SITAGLIPTIN PHOSPHATE) (METFORMIN HY [Suspect]
     Indication: TYPE 2 DIABETES MELLITUS
     Dosage: 850/50 MG (Q 12 HOURS),ORAL
     Route: 048
     Dates: start: 20111001, end: 20111101
  3. INSULIN (INSULIN) (INJECTION) (INSULIN) [Suspect]
     Indication: TYPE 2 DIABETES MELLITUS
     Dosage: 30 IU (10 IU,TID),SUBCUTANEOUS
     Route: 058
     Dates: start: 20100101, end: 20111001
  4. TREMECOX (GABAPENTIN AND MELOXICAM) [Concomitant]
  5. OLMESARTAN MEDOXOMIL [Suspect]
     Indication: HYPERTENSION
     Dosage: 20 MG (20 MG,QD),PER ORAL ; 20 MG (20 MG,QD),PER ORAL
     Route: 048
     Dates: start: 20111101
  6. OLMESARTAN MEDOXOMIL [Suspect]
     Indication: HYPERTENSION
     Dosage: 20 MG (20 MG,QD),PER ORAL ; 20 MG (20 MG,QD),PER ORAL
     Route: 048
     Dates: end: 20111001
  7. LANTUS (INSULIN GLARGINE) (INJECTION) (INSULIN GLARGINE) [Suspect]
     Indication: TYPE 2 DIABETES MELLITUS
     Dosage: SEE IMAGE
     Route: 058
     Dates: start: 20100101, end: 20111001
  8. LANTUS (INSULIN GLARGINE) (INJECTION) (INSULIN GLARGINE) [Suspect]
     Indication: TYPE 2 DIABETES MELLITUS
     Dosage: SEE IMAGE
     Route: 058
     Dates: start: 20100101, end: 20100101
  9. LANTUS (INSULIN GLARGINE) (INJECTION) (INSULIN GLARGINE) [Suspect]
     Indication: TYPE 2 DIABETES MELLITUS
     Dosage: SEE IMAGE
     Route: 058
     Dates: start: 20111001
  10. TRIACOR (FELODIPINE, RAMIPRIL) (FELODIPINE, RAMIPRIL) [Suspect]
     Indication: HYPERTENSION
     Dosage: 5/5 MG (QD),PER ORAL ;1 DOSAGE FORMS (1 DOSAGE FORMS,QD),PER ORAL
     Route: 048
     Dates: end: 20110101
  11. TRIACOR (FELODIPINE, RAMIPRIL) (FELODIPINE, RAMIPRIL) [Suspect]
     Indication: HYPERTENSION
     Dosage: 5/5 MG (QD),PER ORAL ;1 DOSAGE FORMS (1 DOSAGE FORMS,QD),PER ORAL
     Route: 048
     Dates: start: 20111101
  12. BEROCCA T (ASORBIC ACID, BIOTIN, CALCIUM CARBONATE, MAGNESUIM, VITAMIN [Concomitant]

REACTIONS (5)
  - TREATMENT NONCOMPLIANCE [None]
  - DYSPNOEA [None]
  - HYPERGLYCAEMIA [None]
  - FALL [None]
  - BLOOD PRESSURE INCREASED [None]
